FAERS Safety Report 4833653-4 (Version None)
Quarter: 2005Q4

REPORT INFORMATION
  Report Type: 
  Country: None (occurrence: None)
  Receive Date: 20051114
  Receipt Date: 20051103
  Transmission Date: 20060501
  Serious: Yes (Hospitalization)
  Sender: FDA-Public Use
  Company Number: HQWYE974212OCT05

PATIENT
  Age: 55 Year
  Sex: Male

DRUGS (9)
  1. EFFEXOR XR [Suspect]
     Indication: ANXIETY
     Dosage: 75 MG 1X PER 1 DAY, ORAL
     Route: 048
     Dates: start: 20050701, end: 20050901
  2. EFFEXOR XR [Suspect]
     Indication: DEPRESSION
     Dosage: 75 MG 1X PER 1 DAY, ORAL
     Route: 048
     Dates: start: 20050701, end: 20050901
  3. EFFEXOR XR [Suspect]
     Indication: OBSESSIVE-COMPULSIVE DISORDER
     Dosage: 75 MG 1X PER 1 DAY, ORAL
     Route: 048
     Dates: start: 20050701, end: 20050901
  4. XANAX [Concomitant]
  5. SYNTHROID [Concomitant]
  6. VALTREX [Concomitant]
  7. ZITHROMAX [Concomitant]
  8. PEPCID [Concomitant]
  9. ASPIRIN [Concomitant]

REACTIONS (6)
  - AUTOIMMUNE DISORDER [None]
  - BILIARY TRACT DISORDER [None]
  - BIOPSY LIVER ABNORMAL [None]
  - CHOLESTASIS [None]
  - HEPATIC FIBROSIS [None]
  - INJURY [None]
